FAERS Safety Report 4446968-9 (Version None)
Quarter: 2004Q3

REPORT INFORMATION
  Report Type: 
  Country: None (occurrence: None)
  Receive Date: 20040812
  Receipt Date: 20040603
  Transmission Date: 20050211
  Serious: Yes (Other)
  Sender: FDA-Public Use
  Company Number: US_0406103456

PATIENT
  Age: 45 Year
  Sex: Male

DRUGS (3)
  1. CIALIS [Suspect]
  2. NIACIN [Concomitant]
  3. ZOCOR [Concomitant]

REACTIONS (1)
  - MYOCARDIAL INFARCTION [None]
